FAERS Safety Report 4899751-4 (Version None)
Quarter: 2006Q1

REPORT INFORMATION
  Report Type: 
  Country: None (occurrence: None)
  Receive Date: 20060118
  Receipt Date: 20050812
  Transmission Date: 20060701
  Serious: No
  Sender: FDA-Public Use
  Company Number: 2005001590

PATIENT
  Age: 84 Year
  Sex: Female

DRUGS (7)
  1. TARCEVA [Suspect]
     Indication: NON-SMALL CELL LUNG CANCER
     Dosage: 150 MG (QD), ORAL
     Route: 048
     Dates: start: 20050601, end: 20050810
  2. DIAVAN [Concomitant]
  3. LEVOXYL [Concomitant]
  4. NIFEDIPINE [Concomitant]
  5. EVISTA [Concomitant]
  6. PROTONIX [Concomitant]
  7. TRIAMTERENE (DYAZIDE) [Concomitant]

REACTIONS (3)
  - ARTHRALGIA [None]
  - ASTHENIA [None]
  - HYPOTENSION [None]
